FAERS Safety Report 8062309 (Version 5)
Quarter: 2012Q4

REPORT INFORMATION
  Report Type: Report from Study
  Country: US (occurrence: US)
  Receive Date: 20110801
  Receipt Date: 20121204
  Transmission Date: 20130627
  Serious: Yes (Hospitalization)
  Sender: FDA-Public Use
  Company Number: US-JNJFOC-20110711134

PATIENT
  Age: 59 Year
  Sex: Female
  Weight: 56.8 kg

DRUGS (2)
  1. CISAPRIDE [Suspect]
     Indication: GASTROINTESTINAL MOTILITY DISORDER
     Route: 048
     Dates: start: 20110714, end: 20110721
  2. CISAPRIDE [Suspect]
     Indication: GASTROOESOPHAGEAL REFLUX DISEASE
     Route: 048
     Dates: start: 20110714, end: 20110721

REACTIONS (1)
  - Electrocardiogram QT prolonged [Recovered/Resolved]
